FAERS Safety Report 5882976-9 (Version None)
Quarter: 2008Q3

REPORT INFORMATION
  Report Type: 
  Country: None (occurrence: None)
  Receive Date: 20080913
  Receipt Date: 20080825
  Transmission Date: 20090109
  Serious: Yes (Hospitalization)
  Sender: FDA-Public Use
  Company Number: US-ABBOTT-08P-163-0472373-00

PATIENT
  Sex: Male

DRUGS (3)
  1. HUMIRA [Suspect]
     Indication: CROHN'S DISEASE
     Route: 050
     Dates: end: 20080819
  2. HUMIRA [Suspect]
     Dates: start: 20080101
  3. HUMIRA [Suspect]

REACTIONS (2)
  - CELLULITIS [None]
  - RASH [None]
